FAERS Safety Report 10414729 (Version 1)
Quarter: 2014Q3

REPORT INFORMATION
  Report Type: Spontaneous
  Country: FR (occurrence: FR)
  Receive Date: 20140828
  Receipt Date: 20140828
  Transmission Date: 20150326
  Serious: Yes (Death, Life-Threatening, Hospitalization)
  Sender: FDA-Public Use
  Company Number: FR-SUN PHARMACEUTICAL INDUSTRIES LTD-2014SUN01903

PATIENT
  Age: 64 Year
  Sex: Female
  Weight: 55 kg

DRUGS (12)
  1. DOLIPRANE [Concomitant]
     Active Substance: ACETAMINOPHEN
  2. LEVETIRACETAM INJECTION 500MG/5ML [Suspect]
     Active Substance: LEVETIRACETAM
     Indication: PRODUCT USED FOR UNKNOWN INDICATION
     Dosage: 500 MG/DAY, UNK
     Route: 042
     Dates: start: 20140805, end: 20140808
  3. MIDAZOLAM [Concomitant]
     Active Substance: MIDAZOLAM\MIDAZOLAM HYDROCHLORIDE
  4. ALPRAZOLAM. [Concomitant]
     Active Substance: ALPRAZOLAM
  5. CEFTRIAXONE. [Concomitant]
     Active Substance: CEFTRIAXONE
  6. INSULIN [Concomitant]
     Active Substance: INSULIN NOS
  7. MORPHINE [Concomitant]
     Active Substance: MORPHINE
  8. SCOPOLAMINE [Concomitant]
     Active Substance: SCOPOLAMINE
  9. RIVOTRIL [Suspect]
     Active Substance: CLONAZEPAM
     Indication: PRODUCT USED FOR UNKNOWN INDICATION
     Dosage: UNK
     Route: 065
     Dates: start: 20140805, end: 20140813
  10. METHYLPREDNISOLONE [Concomitant]
     Active Substance: METHYLPREDNISOLONE
  11. PANTOPRAZOLE [Concomitant]
     Active Substance: PANTOPRAZOLE SODIUM
  12. LDK 378 [Concomitant]

REACTIONS (2)
  - Thrombocytopenia [Fatal]
  - Hepatitis [Fatal]

NARRATIVE: CASE EVENT DATE: 20140808
